FAERS Safety Report 24581172 (Version 1)
Quarter: 2024Q4

REPORT INFORMATION
  Report Type: Spontaneous
  Country: US (occurrence: US)
  Receive Date: 20241105
  Receipt Date: 20241105
  Transmission Date: 20250115
  Serious: No
  Sender: MYLAN
  Company Number: US-MYLANLABS-2024M1096187

PATIENT

DRUGS (3)
  1. CROMOLYN SODIUM [Suspect]
     Active Substance: CROMOLYN SODIUM
     Indication: Product used for unknown indication
     Dosage: UNK
     Route: 065
  2. NASALCROM [Concomitant]
     Active Substance: CROMOLYN SODIUM
     Indication: Rhinorrhoea
     Dosage: UNK, BID (H1 AND H2)
     Route: 065
  3. QUERCETIN [Concomitant]
     Active Substance: QUERCETIN
     Indication: Flushing
     Dosage: UNK
     Route: 065

REACTIONS (4)
  - Temperature intolerance [Unknown]
  - Dry skin [Unknown]
  - Photosensitivity reaction [Unknown]
  - Drug ineffective [Unknown]
